FAERS Safety Report 17273927 (Version 1)
Quarter: 2020Q1

REPORT INFORMATION
  Report Type: Report from Study
  Country: CA (occurrence: CA)
  Receive Date: 20200115
  Receipt Date: 20200115
  Transmission Date: 20200409
  Serious: Yes (Other)
  Sender: FDA-Public Use
  Company Number: CA-JNJFOC-20190708171

PATIENT
  Sex: Female
  Weight: 70.1 kg

DRUGS (1)
  1. REMICADE [Suspect]
     Active Substance: INFLIXIMAB
     Indication: CROHN^S DISEASE
     Route: 042
     Dates: start: 20130503

REACTIONS (2)
  - Crohn^s disease [Not Recovered/Not Resolved]
  - Malignant melanoma [Recovered/Resolved]
